FAERS Safety Report 6045788-1 (Version None)
Quarter: 2009Q1

REPORT INFORMATION
  Report Type: 
  Country: None (occurrence: None)
  Receive Date: 20090121
  Receipt Date: 20090116
  Transmission Date: 20090719
  Serious: Yes (Other)
  Sender: FDA-Public Use
  Company Number: JP-JNJFOC-20090103958

PATIENT
  Age: 2 Year
  Sex: Male

DRUGS (5)
  1. TOPINA [Suspect]
     Route: 048
  2. TOPINA [Suspect]
     Route: 048
  3. TOPINA [Suspect]
     Indication: EPILEPSY
     Route: 048
  4. PHENOBARBITAL TAB [Concomitant]
     Indication: EPILEPSY
     Route: 048
  5. RIVOTRIL [Concomitant]
     Indication: EPILEPSY
     Route: 048

REACTIONS (1)
  - HYPERAMMONAEMIA [None]
